FAERS Safety Report 14977715 (Version 2)
Quarter: 2018Q2

REPORT INFORMATION
  Report Type: Spontaneous
  Country: US (occurrence: US)
  Receive Date: 20180606
  Receipt Date: 20180612
  Transmission Date: 20180711
  Serious: Yes (Other)
  Sender: FDA-Public Use
  Company Number: US-TEVA-2018-US-902661

PATIENT
  Age: 53 Year
  Sex: Female

DRUGS (1)
  1. IPRATROPIUM BROMIDE. [Suspect]
     Active Substance: IPRATROPIUM BROMIDE
     Indication: ASTHMA
     Dosage: INHALATION - SOLUTION
     Route: 065
     Dates: start: 20180508

REACTIONS (8)
  - Insomnia [Unknown]
  - Cough [Recovering/Resolving]
  - Nasal discomfort [Unknown]
  - Drug ineffective [Unknown]
  - Dysphonia [Unknown]
  - Chest discomfort [Unknown]
  - Pulmonary congestion [Unknown]
  - Back pain [Unknown]

NARRATIVE: CASE EVENT DATE: 20180508
